FAERS Safety Report 5515600-5 (Version None)
Quarter: 2007Q4

REPORT INFORMATION
  Report Type: 
  Country: None (occurrence: None)
  Receive Date: 20071113
  Receipt Date: 20070625
  Transmission Date: 20080405
  Serious: No
  Sender: FDA-Public Use
  Company Number: A0659950A

PATIENT
  Age: 77 Year
  Sex: Female

DRUGS (4)
  1. COREG [Suspect]
     Indication: PAIN
     Dosage: 6.25MG TWICE PER DAY
     Route: 048
     Dates: start: 20070201
  2. COREG [Suspect]
     Dosage: 3.125MG TWICE PER DAY
     Route: 048
     Dates: start: 20061101
  3. MEVACOR [Concomitant]
  4. FOSAMAX [Concomitant]

REACTIONS (3)
  - APATHY [None]
  - FATIGUE [None]
  - FEELING ABNORMAL [None]
